FAERS Safety Report 11417535 (Version 1)
Quarter: 2015Q3

REPORT INFORMATION
  Report Type: Spontaneous
  Country: US (occurrence: US)
  Receive Date: 20150825
  Receipt Date: 20150825
  Transmission Date: 20151125
  Serious: Yes (Other)
  Sender: FDA-Public Use
  Company Number: US-LUNDBECK-DKLU1094434

PATIENT
  Sex: Female

DRUGS (5)
  1. VALPROIC ACID. [Concomitant]
     Active Substance: VALPROIC ACID
     Indication: COMPLEX PARTIAL SEIZURES
     Route: 065
     Dates: start: 201209
  2. LAMICTAL [Concomitant]
     Active Substance: LAMOTRIGINE
     Indication: COMPLEX PARTIAL SEIZURES
     Dosage: 2 AND A HALF TABLETS
     Route: 065
     Dates: start: 20080807
  3. ONFI [Suspect]
     Active Substance: CLOBAZAM
     Route: 065
  4. ONFI [Suspect]
     Active Substance: CLOBAZAM
     Indication: SEIZURE
     Route: 048
     Dates: start: 20130917, end: 20130925
  5. ONFI [Suspect]
     Active Substance: CLOBAZAM
     Route: 065

REACTIONS (6)
  - Seizure [Recovered/Resolved]
  - Sedation [Unknown]
  - Gait disturbance [Recovered/Resolved]
  - Eye movement disorder [Recovered/Resolved]
  - Dysarthria [Recovered/Resolved]
  - Restlessness [Recovered/Resolved]
